FAERS Safety Report 12143139 (Version 1)
Quarter: 2016Q1

REPORT INFORMATION
  Report Type: Report from Study
  Country: US (occurrence: US)
  Receive Date: 20160303
  Receipt Date: 20160303
  Transmission Date: 20160526
  Serious: Yes (Hospitalization, Other)
  Sender: FDA-Public Use
  Company Number: US-BIOGEN-2014BI049382

PATIENT
  Sex: Female

DRUGS (3)
  1. AVONEX [Suspect]
     Active Substance: INTERFERON BETA-1A
     Route: 030
     Dates: start: 20060311, end: 20070318
  2. AVONEX [Suspect]
     Active Substance: INTERFERON BETA-1A
     Route: 030
     Dates: start: 20140523, end: 201406
  3. AVONEX [Suspect]
     Active Substance: INTERFERON BETA-1A
     Indication: MULTIPLE SCLEROSIS
     Route: 030

REACTIONS (23)
  - Feeling hot [Unknown]
  - Foot fracture [Not Recovered/Not Resolved]
  - Apnoea [Unknown]
  - Cardiac failure congestive [Not Recovered/Not Resolved]
  - General symptom [Not Recovered/Not Resolved]
  - Muscle atrophy [Not Recovered/Not Resolved]
  - Urticaria [Unknown]
  - Myoclonic epilepsy [Not Recovered/Not Resolved]
  - Coordination abnormal [Not Recovered/Not Resolved]
  - Osteoporosis [Not Recovered/Not Resolved]
  - Tremor [Not Recovered/Not Resolved]
  - Muscle spasms [Not Recovered/Not Resolved]
  - Loss of consciousness [Unknown]
  - Renal impairment [Unknown]
  - General physical health deterioration [Unknown]
  - Blindness [Unknown]
  - Muscle rupture [Not Recovered/Not Resolved]
  - Headache [Not Recovered/Not Resolved]
  - Myoclonus [Not Recovered/Not Resolved]
  - Seizure [Not Recovered/Not Resolved]
  - Mobility decreased [Unknown]
  - Peripheral swelling [Unknown]
  - Abasia [Not Recovered/Not Resolved]
